FAERS Safety Report 9571465 (Version 1)
Quarter: 2013Q3

REPORT INFORMATION
  Report Type: Spontaneous
  Country: GB (occurrence: None)
  Receive Date: 20130927
  Receipt Date: 20130927
  Transmission Date: 20140515
  Serious: Yes (Other)
  Sender: FDA-Public Use
  Company Number: CL-520-2013

PATIENT
  Age: 67 Year
  Sex: Female

DRUGS (2)
  1. LEVOFLOXACIN [Suspect]
     Indication: INFECTION
     Route: 048
     Dates: start: 20130101, end: 20130102
  2. LEVOTHYROXIN [Concomitant]

REACTIONS (4)
  - Syncope [None]
  - Vomiting [None]
  - Paralysis [None]
  - Asthenia [None]
